FAERS Safety Report 10878477 (Version 5)
Quarter: 2015Q2

REPORT INFORMATION
  Report Type: Other
  Country: IT (occurrence: IT)
  Receive Date: 20150302
  Receipt Date: 20150506
  Transmission Date: 20150821
  Serious: Yes (Other)
  Sender: FDA-Public Use
  Company Number: IT-MYLANLABS-2015M1005980

PATIENT

DRUGS (2)
  1. QUETIAPINA MYLAN GENERICS [Suspect]
     Active Substance: QUETIAPINE
     Indication: SCHIZOPHRENIA
     Dosage: 37.5 MG, QD
     Route: 048
     Dates: start: 20130301
  2. QUETIAPINA MYLAN GENERICS [Suspect]
     Active Substance: QUETIAPINE
     Dosage: 125 MG, QD
     Dates: end: 20141231

REACTIONS (5)
  - Hallucination [Recovered/Resolved]
  - Abnormal behaviour [Recovered/Resolved]
  - Drug effect decreased [Recovered/Resolved]
  - Aggression [Recovered/Resolved]
  - Product substitution issue [Unknown]

NARRATIVE: CASE EVENT DATE: 20131001
